FAERS Safety Report 10566798 (Version 1)
Quarter: 2014Q4

REPORT INFORMATION
  Report Type: Spontaneous
  Country: CN (occurrence: CN)
  Receive Date: 20141105
  Receipt Date: 20141105
  Transmission Date: 20150529
  Serious: Yes (Other)
  Sender: FDA-Public Use
  Company Number: CN-BAYER-2014-158164

PATIENT

DRUGS (3)
  1. GLUCOBAY [Suspect]
     Active Substance: ACARBOSE
     Dosage: 1 DF, TID
  2. GLUCOBAY [Suspect]
     Active Substance: ACARBOSE
     Dosage: 2 DF, TID
  3. INSULIN [Concomitant]
     Active Substance: INSULIN NOS

REACTIONS (3)
  - Suspected counterfeit product [None]
  - Diabetes mellitus inadequate control [None]
  - Blood glucose abnormal [None]
